FAERS Safety Report 6474158-7 (Version None)
Quarter: 2009Q4

REPORT INFORMATION
  Report Type: 
  Country: None (occurrence: None)
  Receive Date: 20091123
  Receipt Date: 20090902
  Transmission Date: 20100525
  Serious: No
  Sender: FDA-Public Use
  Company Number: 8051448

PATIENT
  Age: 65 Year
  Sex: Female
  Weight: 55.3 kg

DRUGS (4)
  1. CIMZIA [Suspect]
     Indication: RHEUMATOID ARTHRITIS
     Dosage: 200 MG 1/2W SC
     Route: 058
     Dates: start: 20090825
  2. RITUXAN [Concomitant]
  3. ALEVE (CAPLET) [Concomitant]
  4. TYLENOL (CAPLET) [Concomitant]

REACTIONS (2)
  - ABDOMINAL PAIN UPPER [None]
  - NECK PAIN [None]
